FAERS Safety Report 5050962-7 (Version None)
Quarter: 2006Q3

REPORT INFORMATION
  Report Type: 
  Country: None (occurrence: None)
  Receive Date: 20060713
  Receipt Date: 20060710
  Transmission Date: 20061208
  Serious: Yes (Other)
  Sender: FDA-Public Use
  Company Number: ES-MERCK-0607ESP00012

PATIENT
  Age: 80 Year
  Sex: Female
  Weight: 74 kg

DRUGS (7)
  1. INVANZ [Suspect]
     Indication: PNEUMONIA BACTERIAL
     Route: 041
     Dates: start: 20051231, end: 20060109
  2. VALPROATE SODIUM [Suspect]
     Indication: EPILEPSY
     Route: 048
     Dates: start: 19950101, end: 20060103
  3. VALPROATE SODIUM [Suspect]
     Route: 048
     Dates: start: 20060104, end: 20060105
  4. VALPROATE SODIUM [Suspect]
     Route: 048
     Dates: start: 20060106, end: 20060109
  5. VALPROATE SODIUM [Suspect]
     Route: 042
     Dates: start: 20060110, end: 20060110
  6. VALPROATE SODIUM [Suspect]
     Route: 042
     Dates: start: 20060111, end: 20060120
  7. VALPROATE SODIUM [Concomitant]
     Route: 048
     Dates: start: 20060121

REACTIONS (2)
  - DRUG INTERACTION [None]
  - DRUG LEVEL DECREASED [None]
